FAERS Safety Report 8817188 (Version 2)
Quarter: 2012Q4

REPORT INFORMATION
  Report Type: 
  Country: US (occurrence: US)
  Receive Date: 20121001
  Receipt Date: 20121109
  Transmission Date: 20130627
  Serious: Yes (Hospitalization)
  Sender: FDA-Public Use
  Company Number: US-PFIZER INC-2012241729

PATIENT
  Age: 63 Year
  Sex: Male
  Weight: 54.4 kg

DRUGS (5)
  1. CHANTIX [Suspect]
     Indication: SMOKING CESSATION THERAPY
     Dosage: 0.5 mg, 1x/day
     Route: 048
     Dates: start: 20120828, end: 2012
  2. CHANTIX [Suspect]
     Indication: NICOTINE ADDICTION
     Dosage: 1 mg, 2x/day
     Route: 048
     Dates: start: 2012, end: 201209
  3. CHANTIX [Suspect]
     Indication: SMOKER
  4. OXYCONTIN [Concomitant]
     Indication: SPONDYLITIS
     Dosage: 1 q 4 hr as needed
  5. PLAVIX [Concomitant]
     Indication: PERIPHERAL ARTERIAL DISEASE
     Dosage: UNK

REACTIONS (4)
  - Peripheral artery thrombosis [Unknown]
  - Arterial disorder [Unknown]
  - Gastrooesophageal reflux disease [Recovered/Resolved]
  - Vomiting [Recovered/Resolved]
